FAERS Safety Report 5051274-8 (Version None)
Quarter: 2006Q3

REPORT INFORMATION
  Report Type: 
  Country: None (occurrence: None)
  Receive Date: 20060710
  Receipt Date: 20060703
  Transmission Date: 20061208
  Serious: Yes (Hospitalization)
  Sender: FDA-Public Use
  Company Number: HQWYE247518JUL05

PATIENT
  Age: 30 Year
  Sex: Female

DRUGS (12)
  1. RAPAMUNE [Suspect]
     Indication: PROPHYLAXIS AGAINST TRANSPLANT REJECTION
     Dosage: 6 + 4 + 2 MG 1X PER 1 DAY ORAL - SEE IMAGE
     Route: 048
     Dates: start: 20050614, end: 20051025
  2. RAPAMUNE [Suspect]
     Indication: PROPHYLAXIS AGAINST TRANSPLANT REJECTION
     Dosage: 6 + 4 + 2 MG 1X PER 1 DAY ORAL - SEE IMAGE
     Route: 048
     Dates: start: 20051026, end: 20060523
  3. RAPAMUNE [Suspect]
     Indication: PROPHYLAXIS AGAINST TRANSPLANT REJECTION
     Dosage: 6 + 4 + 2 MG 1X PER 1 DAY ORAL - SEE IMAGE
     Route: 048
     Dates: start: 20060524, end: 20060628
  4. PREDNISONE TAB [Concomitant]
  5. NYSTATIN [Concomitant]
  6. SULFAMETHOXAZOLE + TRIMETHOPRIM [Concomitant]
  7. OMEPRAZOLE [Concomitant]
  8. NORFLOXACIN [Concomitant]
  9. ASPIRIN [Concomitant]
  10. ATENOLOL [Concomitant]
  11. FUROSEMIDE [Concomitant]
  12. CYCLOSPORINE [Concomitant]

REACTIONS (2)
  - BLOOD CREATININE INCREASED [None]
  - DIABETES MELLITUS [None]
